FAERS Safety Report 5018661-5 (Version None)
Quarter: 2006Q2

REPORT INFORMATION
  Report Type: 
  Country: None (occurrence: None)
  Receive Date: 20060602
  Receipt Date: 20060510
  Transmission Date: 20061013
  Serious: No
  Sender: FDA-Public Use
  Company Number: US200605003013

PATIENT
  Sex: Female

DRUGS (2)
  1. CYMBALTA [Suspect]
     Indication: DEPRESSION
     Dosage: SEE IMAGE
     Dates: end: 20060427
  2. CYMBALTA [Suspect]
     Indication: DEPRESSION
     Dosage: SEE IMAGE
     Dates: start: 20051001

REACTIONS (3)
  - ALANINE AMINOTRANSFERASE INCREASED [None]
  - ASPARTATE AMINOTRANSFERASE INCREASED [None]
  - DRUG TOLERANCE DECREASED [None]
